FAERS Safety Report 8845447 (Version 1)
Quarter: 2012Q4

REPORT INFORMATION
  Report Type: Spontaneous
  Country: US (occurrence: None)
  Receive Date: 20121015
  Receipt Date: 20121015
  Transmission Date: 20130627
  Serious: Yes (Death, Hospitalization)
  Sender: FDA-Public Use
  Company Number: UTC-023990

PATIENT
  Age: 69 Year
  Sex: Female
  Weight: 63 kg

DRUGS (2)
  1. REMODULIN [Suspect]
     Indication: PULMONARY HYPERTENSION SECONDARY
     Dosage: 44.28 ug/kg (0.03075 ug/kg, 1 in 1 min), subcutaneous
     Route: 058
     Dates: start: 20110826
  2. REMODULIN [Suspect]
     Indication: PULMONARY HYPERTENSION
     Dosage: 44.28 ug/kg (0.03075 ug/kg, 1 in 1 min), subcutaneous
     Route: 058
     Dates: start: 20110826

REACTIONS (1)
  - Death [None]
